FAERS Safety Report 8494172-X (Version None)
Quarter: 2012Q3

REPORT INFORMATION
  Report Type: 
  Country: None (occurrence: None)
  Receive Date: 20120709
  Receipt Date: 20120702
  Transmission Date: 20120928
  Serious: Yes (Hospitalization, Other)
  Sender: FDA-Public Use
  Company Number: PHFR2012GB003559

PATIENT
  Sex: Female
  Weight: 76 kg

DRUGS (8)
  1. METFORMIN HCL [Concomitant]
  2. GABAPENTIN [Concomitant]
  3. LEVEMIR [Concomitant]
  4. ENOXAPARIN [Concomitant]
  5. CLOZARIL [Suspect]
     Indication: PSYCHOTIC DISORDER
     Route: 048
     Dates: end: 20110203
  6. ARIPIPRAZOLE [Concomitant]
  7. ATENOLOL [Concomitant]
     Dosage: 25 MG, QD
  8. DULOXETIME HYDROCHLORIDE [Concomitant]
     Indication: DEPRESSION

REACTIONS (14)
  - STAPHYLOCOCCAL INFECTION [None]
  - ENTEROCOCCAL INFECTION [None]
  - NEUTROPENIA [None]
  - ORAL CANDIDIASIS [None]
  - INFECTION [None]
  - KLEBSIELLA SEPSIS [None]
  - HYPOPHAGIA [None]
  - KLEBSIELLA INFECTION [None]
  - ESCHERICHIA INFECTION [None]
  - MENTAL IMPAIRMENT [None]
  - ANAEMIA [None]
  - CANDIDIASIS [None]
  - DEVICE RELATED INFECTION [None]
  - WEIGHT INCREASED [None]
